FAERS Safety Report 4583582-9 (Version None)
Quarter: 2005Q1

REPORT INFORMATION
  Report Type: 
  Country: None (occurrence: None)
  Receive Date: 20050125
  Receipt Date: 20041011
  Transmission Date: 20050727
  Serious: No
  Sender: FDA-Public Use
  Company Number: USA041080798

PATIENT
  Age: 78 Year
  Sex: Female

DRUGS (4)
  1. FORTEO [Suspect]
     Indication: FRACTURE
  2. FORTEO [Suspect]
     Indication: PATHOLOGICAL FRACTURE
  3. VIOXX [Concomitant]
  4. CELEBREX [Concomitant]

REACTIONS (1)
  - INJECTION SITE HAEMORRHAGE [None]
